FAERS Safety Report 23255405 (Version 1)
Quarter: 2023Q4

REPORT INFORMATION
  Report Type: Report from Study
  Country: BR (occurrence: BR)
  Receive Date: 20231203
  Receipt Date: 20231203
  Transmission Date: 20240109
  Serious: Yes (Other)
  Sender: FDA-Public Use
  Company Number: BR-ELI_LILLY_AND_COMPANY-BR202303009329

PATIENT
  Age: 40 Year
  Sex: Male

DRUGS (1)
  1. FORTEO [Suspect]
     Active Substance: TERIPARATIDE
     Indication: Osteoporosis
     Dosage: 20 UG, UNKNOWN
     Route: 058
     Dates: start: 20230120

REACTIONS (17)
  - Syncope [Unknown]
  - Hernia [Unknown]
  - Blood pressure decreased [Unknown]
  - Haemorrhage [Unknown]
  - Dizziness [Unknown]
  - Fall [Unknown]
  - Injection site bruising [Unknown]
  - Injection site swelling [Unknown]
  - Injection site pain [Unknown]
  - Blood glucose decreased [Unknown]
  - Pain [Unknown]
  - Pain in extremity [Unknown]
  - Coccydynia [Unknown]
  - Contusion [Unknown]
  - Muscle spasms [Unknown]
  - Procedural haemorrhage [Unknown]
  - Injury [Unknown]

NARRATIVE: CASE EVENT DATE: 20230201
